FAERS Safety Report 20779562 (Version 2)
Quarter: 2022Q2

REPORT INFORMATION
  Report Type: Spontaneous
  Country: RU (occurrence: None)
  Receive Date: 20220503
  Receipt Date: 20220511
  Transmission Date: 20220720
  Serious: Yes (Hospitalization)
  Sender: FDA-Public Use
  Company Number: 2022A164810

PATIENT
  Sex: Female
  Weight: 85 kg

DRUGS (13)
  1. DAPAGLIFLOZIN [Suspect]
     Active Substance: DAPAGLIFLOZIN
     Indication: Type 2 diabetes mellitus
     Route: 048
     Dates: start: 2021, end: 202202
  2. DAPAGLIFLOZIN [Suspect]
     Active Substance: DAPAGLIFLOZIN
     Indication: Heart disease congenital
     Route: 048
     Dates: start: 2021, end: 202202
  3. DAPAGLIFLOZIN [Suspect]
     Active Substance: DAPAGLIFLOZIN
     Indication: Angina pectoris
     Route: 048
     Dates: start: 2021, end: 202202
  4. DAPAGLIFLOZIN [Suspect]
     Active Substance: DAPAGLIFLOZIN
     Indication: Hypertension
     Route: 048
     Dates: start: 2021, end: 202202
  5. UROLOGICAL MEDICATIONS [Concomitant]
  6. CYANOCOBALAMIN\DEXPANTHENOL\NIACINAMIDE\PYRIDOXINE HYDROCHLORIDE\RIBOF [Concomitant]
     Active Substance: CYANOCOBALAMIN\DEXPANTHENOL\NIACINAMIDE\PYRIDOXINE HYDROCHLORIDE\RIBOFLAVIN 5^-PHOSPHATE SODIUM\THIA
  7. MOXONIDINE [Concomitant]
     Active Substance: MOXONIDINE
  8. CAPOTEN [Concomitant]
     Active Substance: CAPTOPRIL
  9. KETOROLAC TROMETHAMINE [Concomitant]
     Active Substance: KETOROLAC TROMETHAMINE
  10. URSODIOL [Concomitant]
     Active Substance: URSODIOL
  11. LOSARTAN [Concomitant]
     Active Substance: LOSARTAN
  12. ACICLOVIR OINTMENTS [Concomitant]
  13. UNSPECIFIED INGREDIENT [Concomitant]
     Active Substance: UNSPECIFIED INGREDIENT

REACTIONS (11)
  - Cholelithiasis [Recovered/Resolved]
  - Calculus urinary [Recovered/Resolved]
  - Blood creatinine increased [Unknown]
  - Blood urea increased [Unknown]
  - Immunodeficiency [Unknown]
  - COVID-19 [Unknown]
  - Drug hypersensitivity [Unknown]
  - Hepatic function abnormal [Unknown]
  - Blood cholesterol increased [Unknown]
  - General physical health deterioration [Unknown]
  - Off label use [Unknown]

NARRATIVE: CASE EVENT DATE: 20211001
